FAERS Safety Report 19549666 (Version 1)
Quarter: 2021Q3

REPORT INFORMATION
  Report Type: Spontaneous
  Country: US (occurrence: US)
  Receive Date: 20210715
  Receipt Date: 20210715
  Transmission Date: 20211014
  Serious: Yes (Other)
  Sender: FDA-Public Use
  Company Number: US-SA-2021SA228761

PATIENT
  Age: 61 Year
  Sex: Male
  Weight: 104.3 kg

DRUGS (8)
  1. PLAQUENIL [Concomitant]
     Active Substance: HYDROXYCHLOROQUINE SULFATE
     Indication: RHEUMATOID ARTHRITIS
     Dosage: UNK
  2. KEVZARA [Suspect]
     Active Substance: SARILUMAB
     Indication: RHEUMATOID ARTHRITIS
     Dosage: 200 MG, QOW
     Route: 058
     Dates: start: 20180615
  3. KEVZARA [Suspect]
     Active Substance: SARILUMAB
     Dosage: 200 MG, Q3W
     Route: 058
     Dates: start: 2019
  4. RINVOQ [Concomitant]
     Active Substance: UPADACITINIB
     Dosage: UNK
  5. ABATACEPT [Concomitant]
     Active Substance: ABATACEPT
     Indication: PRODUCT USED FOR UNKNOWN INDICATION
     Dosage: UNK
  6. HUMIRA [Concomitant]
     Active Substance: ADALIMUMAB
     Indication: RHEUMATOID ARTHRITIS
     Dosage: 40 MG, QOW
     Route: 058
     Dates: start: 20171115, end: 20180615
  7. KEVZARA [Suspect]
     Active Substance: SARILUMAB
     Dosage: 200 MG, QOW
     Route: 058
     Dates: start: 20200314, end: 20200702
  8. ORENCIA [Suspect]
     Active Substance: ABATACEPT
     Dosage: UNK

REACTIONS (10)
  - White blood cell count abnormal [Recovered/Resolved]
  - Rheumatoid arthritis [Recovering/Resolving]
  - White blood cell count decreased [Recovered/Resolved]
  - Nasopharyngitis [Recovering/Resolving]
  - Product use issue [Unknown]
  - Weight increased [Recovered/Resolved]
  - Immunodeficiency [Recovered/Resolved]
  - Blood count abnormal [Recovering/Resolving]
  - Abnormal weight gain [Not Recovered/Not Resolved]
  - Drug ineffective [Unknown]

NARRATIVE: CASE EVENT DATE: 2018
